FAERS Safety Report 15545316 (Version 1)
Quarter: 2018Q4

REPORT INFORMATION
  Report Type: Spontaneous
  Country: US (occurrence: US)
  Receive Date: 20181024
  Receipt Date: 20181024
  Transmission Date: 20190205
  Serious: No
  Sender: FDA-Public Use
  Company Number: US-PFIZER INC-2018419774

PATIENT
  Age: 81 Year
  Sex: Male
  Weight: 102.5 kg

DRUGS (2)
  1. LYRICA [Suspect]
     Active Substance: PREGABALIN
     Indication: NERVE INJURY
     Dosage: 100 MG, 3X/DAY [BREAKFAST, EARLY AFTERNOON, THEN I AM TRYING TO STRETCH IT TO MIDNIGHT]
     Route: 048
     Dates: start: 201808
  2. LYRICA [Suspect]
     Active Substance: PREGABALIN
     Indication: POST HERPETIC NEURALGIA
     Dosage: 75 MG, 3X/DAY

REACTIONS (5)
  - Hypoacusis [Not Recovered/Not Resolved]
  - Drug ineffective [Unknown]
  - Intentional product use issue [Unknown]
  - Musculoskeletal disorder [Unknown]
  - Condition aggravated [Not Recovered/Not Resolved]
